FAERS Safety Report 9309671 (Version 2)
Quarter: 2014Q2

REPORT INFORMATION
  Report Type: Spontaneous
  Country: US (occurrence: US)
  Receive Date: 20130525
  Receipt Date: 20140510
  Transmission Date: 20141212
  Serious: No
  Sender: FDA-Public Use
  Company Number: US-BRISTOL-MYERS SQUIBB COMPANY-18732032

PATIENT
  Age: 56 Year
  Sex: Male
  Weight: 83.9 kg

DRUGS (1)
  1. BYDUREON [Suspect]
     Route: 058

REACTIONS (2)
  - Injection site nodule [Not Recovered/Not Resolved]
  - Injection site haematoma [Unknown]
